FAERS Safety Report 8473675-8 (Version None)
Quarter: 2012Q2

REPORT INFORMATION
  Report Type: 
  Country: None (occurrence: None)
  Receive Date: 20120628
  Receipt Date: 20110906
  Transmission Date: 20120825
  Serious: Yes (Other)
  Sender: FDA-Public Use
  Company Number: US-MYLANLABS-2011S1017591

PATIENT
  Age: 29 Year
  Sex: Male
  Weight: 112.49 kg

DRUGS (4)
  1. RISPERIDONE [Concomitant]
     Route: 048
  2. DEPAKOTE ER [Concomitant]
     Route: 048
  3. FLUTICASON [Concomitant]
     Route: 045
  4. CLOZAPINE [Suspect]
     Indication: SCHIZOAFFECTIVE DISORDER
     Dates: start: 20050915, end: 20110813

REACTIONS (1)
  - GRANULOCYTOPENIA [None]
